FAERS Safety Report 7647900-7 (Version None)
Quarter: 2011Q3

REPORT INFORMATION
  Report Type: 
  Country: None (occurrence: None)
  Receive Date: 20110801
  Receipt Date: 20110719
  Transmission Date: 20111222
  Serious: Yes (Hospitalization)
  Sender: FDA-Public Use
  Company Number: JP-ABBOTT-07P-087-0357198-00

PATIENT
  Sex: Female

DRUGS (14)
  1. LANSOPRAZOLE [Concomitant]
     Indication: PROPHYLAXIS
     Dates: start: 20070123
  2. DIAZEPAM [Concomitant]
     Indication: PROPHYLAXIS
     Route: 048
     Dates: start: 20070118, end: 20070118
  3. LEUPROLIDE ACETATE [Suspect]
  4. ALFACALCIDOL [Concomitant]
     Indication: PROPHYLAXIS
     Route: 048
     Dates: start: 20070123
  5. HUSTAZOL [Concomitant]
     Indication: PROPHYLAXIS
     Route: 048
     Dates: start: 20070118, end: 20070118
  6. LEUPROLIDE ACETATE [Suspect]
     Indication: BREAST CANCER
     Route: 058
     Dates: start: 20060726
  7. TAMOXIFEN CITRATE [Concomitant]
     Route: 048
     Dates: start: 20070202, end: 20110228
  8. ISODINE GARGLE [Concomitant]
     Indication: PROPHYLAXIS
     Route: 048
     Dates: start: 20070123
  9. TAMOXIFEN CITRATE [Concomitant]
     Indication: MENOPAUSE
     Route: 048
     Dates: start: 20060726, end: 20070117
  10. RISEDRONATE SODIUM [Concomitant]
     Indication: PROPHYLAXIS
     Dates: start: 20070124
  11. HUSCODE [Concomitant]
     Indication: PROPHYLAXIS
     Dates: start: 20070118, end: 20070118
  12. PURSENNID [Concomitant]
     Indication: CONSTIPATION
     Route: 048
     Dates: start: 20070123
  13. ATROPINE SULFATE [Concomitant]
     Indication: PROPHYLAXIS
     Route: 050
     Dates: start: 20070118, end: 20070118
  14. ATARAX [Concomitant]
     Indication: PROPHYLAXIS
     Route: 050
     Dates: start: 20070118, end: 20070118

REACTIONS (1)
  - ORGANISING PNEUMONIA [None]
